FAERS Safety Report 10921369 (Version 1)
Quarter: 2015Q1

REPORT INFORMATION
  Report Type: Spontaneous
  Country: US (occurrence: None)
  Receive Date: 20150312
  Receipt Date: 20150312
  Transmission Date: 20150721
  Serious: Yes (Other)
  Sender: FDA-Public Use
  Company Number: 2778492

PATIENT
  Sex: Female

DRUGS (1)
  1. BUPIVACAINE HCL [Suspect]
     Active Substance: BUPIVACAINE HYDROCHLORIDE
     Indication: NERVE BLOCK
     Dosage: NOT REPORTED, UNKNOWN, INTRADISCAL ???
     Route: 024
     Dates: start: 20141126

REACTIONS (6)
  - Discomfort [None]
  - Maternal exposure timing unspecified [None]
  - Drug effect incomplete [None]
  - Pain [None]
  - Caesarean section [None]
  - Anaesthetic complication [None]

NARRATIVE: CASE EVENT DATE: 20141126
